FAERS Safety Report 7945702-5 (Version None)
Quarter: 2011Q4

REPORT INFORMATION
  Report Type: 
  Country: None (occurrence: None)
  Receive Date: 20111129
  Receipt Date: 20101203
  Transmission Date: 20120403
  Serious: Yes (Other)
  Sender: FDA-Public Use
  Company Number: US-MYLANLABS-2010S1019548

PATIENT
  Age: 45 Year
  Sex: Male
  Weight: 81.65 kg

DRUGS (10)
  1. CLONAZEPAM [Suspect]
     Route: 048
     Dates: end: 20100216
  2. CLONAZEPAM [Suspect]
     Route: 048
     Dates: start: 20030101
  3. CLONAZEPAM [Suspect]
     Indication: NERVOUSNESS
     Route: 048
     Dates: start: 20030101
  4. CLONAZEPAM [Suspect]
     Route: 048
     Dates: end: 20100216
  5. CLONAZEPAM [Suspect]
     Route: 048
  6. CLONAZEPAM [Suspect]
     Route: 048
  7. ENALAPRIL MALEATE [Concomitant]
  8. CLONAZEPAM [Suspect]
     Route: 048
  9. CLONAZEPAM [Suspect]
     Route: 048
  10. CLONAZEPAM [Suspect]
     Route: 048

REACTIONS (2)
  - DRUG WITHDRAWAL SYNDROME [None]
  - DRUG DEPENDENCE [None]
